FAERS Safety Report 5206865-8 (Version None)
Quarter: 2006Q4

REPORT INFORMATION
  Report Type: 
  Country: None (occurrence: None)
  Receive Date: 20061030
  Receipt Date: 20060928
  Transmission Date: 20070319
  Serious: No
  Sender: FDA-Public Use
  Company Number: 257429

PATIENT
  Age: 58 Year
  Sex: Male
  Weight: 99.8 kg

DRUGS (7)
  1. LEVEMIR [Suspect]
     Indication: INSULIN-REQUIRING TYPE II DIABETES MELLITUS
     Dosage: 85 IU, QD, SUBCUTANEOUS
     Route: 058
     Dates: start: 20060301
  2. LEVEMIR [Suspect]
     Dosage: 85 IU, QD, SUBCUTANEOUS
     Route: 058
     Dates: start: 20060301
  3. LEVEMIR [Suspect]
     Dosage: 85 IE, QD, SUBCUTANEOUS
     Route: 058
     Dates: start: 20060301
  4. AMARYL [Concomitant]
  5. FORTAMET (METFORMIN HYDROCHLORIDE) [Concomitant]
  6. COREG [Concomitant]
  7. NOVOFINE(R) 31 (NEEDLE) [Concomitant]

REACTIONS (1)
  - HEART RATE INCREASED [None]
